FAERS Safety Report 15192477 (Version 2)
Quarter: 2018Q3

REPORT INFORMATION
  Report Type: Spontaneous
  Country: US (occurrence: US)
  Receive Date: 20180725
  Receipt Date: 20180731
  Transmission Date: 20181010
  Serious: Yes (Hospitalization, Other)
  Sender: FDA-Public Use
  Company Number: US-BEH-2018092929

PATIENT
  Age: 85 Year
  Sex: Male
  Weight: 73.24 kg

DRUGS (41)
  1. VITAMIN C [Concomitant]
     Active Substance: ASCORBIC ACID
  2. ZOSYN [Concomitant]
     Active Substance: PIPERACILLIN SODIUM\TAZOBACTAM SODIUM
  3. CELEXA [Concomitant]
     Active Substance: CITALOPRAM HYDROBROMIDE
  4. GABAPENTIN. [Concomitant]
     Active Substance: GABAPENTIN
  5. DOCUSATE [Concomitant]
     Active Substance: DOCUSATE
  6. VITAMIN B12 [Concomitant]
     Active Substance: CYANOCOBALAMIN
  7. CENTRUM SILVER                     /02363801/ [Concomitant]
     Active Substance: MINERALS\VITAMINS
  8. SYSTANE (HYPROMELLOSE 2910 (4000 MPA.S)) [Concomitant]
     Active Substance: HYPROMELLOSE 2910 (4000 MPA.S)
  9. ADVAIR HFA [Concomitant]
     Active Substance: FLUTICASONE PROPIONATE\SALMETEROL XINAFOATE
  10. DIPHENHYDRAMINE. [Concomitant]
     Active Substance: DIPHENHYDRAMINE
  11. IPRATROPIUM BROMIDE AND ALBUTEROL SULFATE [Concomitant]
     Active Substance: ALBUTEROL SULFATE\IPRATROPIUM BROMIDE
  12. SODIUM CHLORIDE. [Concomitant]
     Active Substance: SODIUM CHLORIDE
  13. ELIQUIS [Concomitant]
     Active Substance: APIXABAN
  14. LIDOCAINE. [Concomitant]
     Active Substance: LIDOCAINE
  15. PROBIOTIC                          /06395501/ [Concomitant]
     Active Substance: BIFIDOBACTERIUM ANIMALIS LACTIS
  16. SIMVASTATIN. [Concomitant]
     Active Substance: SIMVASTATIN
  17. VANCOMYCIN [Concomitant]
     Active Substance: VANCOMYCIN
  18. PREDNISONE. [Concomitant]
     Active Substance: PREDNISONE
  19. GONAKOR [Concomitant]
  20. CALTRATE WITH VITAMIN D [Concomitant]
     Active Substance: CALCIUM CARBONATE\CHOLECALCIFEROL
  21. PEPCID                             /00305201/ [Concomitant]
     Active Substance: ALUMINUM HYDROXIDE\MAGNESIUM CARBONATE
  22. ZEMAIRA [Suspect]
     Active Substance: .ALPHA.1-PROTEINASE INHIBITOR HUMAN
     Dosage: 60 MG/KG, UNK
     Route: 065
     Dates: start: 20160520
  23. POTASSIUM CHLORIDE. [Concomitant]
     Active Substance: POTASSIUM CHLORIDE
  24. ASPIRIN. [Concomitant]
     Active Substance: ASPIRIN
  25. EPINEPHRINE. [Concomitant]
     Active Substance: EPINEPHRINE
  26. TYLENOL [Concomitant]
     Active Substance: ACETAMINOPHEN
  27. NYSTATIN. [Concomitant]
     Active Substance: NYSTATIN
  28. MUCINEX [Concomitant]
     Active Substance: GUAIFENESIN
  29. PROAIR HFA [Concomitant]
     Active Substance: ALBUTEROL SULFATE
  30. PROLIA [Concomitant]
     Active Substance: DENOSUMAB
  31. OXYGEN. [Concomitant]
     Active Substance: OXYGEN
  32. CARVEDILOL. [Concomitant]
     Active Substance: CARVEDILOL
  33. MIRALAX [Concomitant]
     Active Substance: POLYETHYLENE GLYCOL 3350
  34. FERROUS SULFATE. [Concomitant]
     Active Substance: FERROUS SULFATE
  35. ZEMAIRA [Suspect]
     Active Substance: .ALPHA.1-PROTEINASE INHIBITOR HUMAN
     Indication: ALPHA-1 ANTI-TRYPSIN DEFICIENCY
     Dosage: UNK
     Route: 065
  36. LASIX [Concomitant]
     Active Substance: FUROSEMIDE
  37. VITAMIN D3 [Concomitant]
     Active Substance: CHOLECALCIFEROL
  38. CIPROFLOXACIN. [Concomitant]
     Active Substance: CIPROFLOXACIN
  39. NYSTATIN AND TRIAMCINOLONE [Concomitant]
     Active Substance: NYSTATIN\TRIAMCINOLONE ACETONIDE
  40. LORAZEPAM. [Concomitant]
     Active Substance: LORAZEPAM
  41. CEFEPIME [Concomitant]
     Active Substance: CEFEPIME HYDROCHLORIDE

REACTIONS (3)
  - Rectal haemorrhage [Unknown]
  - Bacteraemia [Recovered/Resolved]
  - Staphylococcal infection [Unknown]

NARRATIVE: CASE EVENT DATE: 20180716
